FAERS Safety Report 5968910-1 (Version None)
Quarter: 2008Q4

REPORT INFORMATION
  Report Type: 
  Country: None (occurrence: None)
  Receive Date: 20081126
  Receipt Date: 20081119
  Transmission Date: 20090506
  Serious: Yes (Hospitalization, Other)
  Sender: FDA-Public Use
  Company Number: US-ELI_LILLY_AND_COMPANY-US200811004875

PATIENT
  Sex: Female
  Weight: 183.67 kg

DRUGS (3)
  1. BYETTA [Suspect]
     Indication: TYPE 2 DIABETES MELLITUS
     Dosage: 5 UG, 2/D
     Route: 058
     Dates: start: 20080601, end: 20081101
  2. BYETTA [Suspect]
     Dosage: 5 UG, 2/D
     Route: 058
     Dates: start: 20081101
  3. GLIPIZIDE [Concomitant]
     Indication: TYPE 2 DIABETES MELLITUS
     Dosage: 10 MG, DAILY (1/D)
     Route: 048

REACTIONS (7)
  - BLADDER DISORDER [None]
  - BLADDER PROLAPSE [None]
  - DRUG DOSE OMISSION [None]
  - LARGE INTESTINAL ULCER [None]
  - PYREXIA [None]
  - RECTAL HAEMORRHAGE [None]
  - RENAL DISORDER [None]
